FAERS Safety Report 9507585 (Version 1)
Quarter: 2013Q3

REPORT INFORMATION
  Report Type: Spontaneous
  Country: US (occurrence: None)
  Receive Date: 20130906
  Receipt Date: 20130906
  Transmission Date: 20140515
  Serious: Yes (Life-Threatening)
  Sender: FDA-Public Use
  Company Number: None

PATIENT
  Age: 61 Year
  Sex: Female

DRUGS (3)
  1. VALSARTAN / HCTZ [Suspect]
     Dosage: 160/25   ONCE DAILY  TAKEN BY MOUTH
     Route: 048
     Dates: start: 20130701, end: 20130727
  2. DIOVAN HCT [Concomitant]
  3. ATENOLOL [Concomitant]

REACTIONS (4)
  - Epistaxis [None]
  - Loss of consciousness [None]
  - Blood pressure increased [None]
  - Product substitution issue [None]
